FAERS Safety Report 8364190-0 (Version None)
Quarter: 2012Q2

REPORT INFORMATION
  Report Type: 
  Country: None (occurrence: None)
  Receive Date: 20120516
  Receipt Date: 20120320
  Transmission Date: 20120825
  Serious: Yes (Hospitalization)
  Sender: FDA-Public Use
  Company Number: US-ALEXION-A201200526

PATIENT
  Sex: Female

DRUGS (8)
  1. COUMADIN [Concomitant]
     Dosage: UNK
  2. AMBIEN [Concomitant]
     Dosage: UNK, PRN
  3. PREDNISONE TAB [Concomitant]
     Dosage: 9 MG, UNK
  4. CLONIDINE [Concomitant]
     Indication: HYPERTENSION
     Dosage: UNK
  5. SOLIRIS [Suspect]
     Indication: ANTIPHOSPHOLIPID SYNDROME
     Dosage: 900 MG, Q2W
     Route: 042
  6. COREG [Concomitant]
     Indication: HYPERTENSION
     Dosage: UNK
  7. PREDNISONE TAB [Concomitant]
     Dosage: UNK
  8. IMMUNE GLOBULIN NOS [Concomitant]
     Dosage: UNK

REACTIONS (4)
  - SINUSITIS [None]
  - NAUSEA [None]
  - CATHETER SITE CELLULITIS [None]
  - VOMITING [None]
